FAERS Safety Report 9872451 (Version 2)
Quarter: 2015Q1

REPORT INFORMATION
  Report Type: Spontaneous
  Country: US (occurrence: US)
  Receive Date: 20140206
  Receipt Date: 20150203
  Transmission Date: 20150721
  Serious: No
  Sender: FDA-Public Use
  Company Number: US-ACORDA-ACO_100359_2013

PATIENT
  Sex: Female

DRUGS (6)
  1. AMPYRA [Suspect]
     Active Substance: DALFAMPRIDINE
     Indication: QUADRIPLEGIA
  2. 4-AP [Suspect]
     Active Substance: DALFAMPRIDINE
     Dosage: 60 MG, QD
     Route: 065
  3. 4-AP [Suspect]
     Active Substance: DALFAMPRIDINE
     Dosage: 45 MG, QD
     Route: 065
  4. AMPYRA [Suspect]
     Active Substance: DALFAMPRIDINE
     Indication: SPINAL CORD INJURY
     Dosage: UNK
     Route: 065
     Dates: start: 1996, end: 1996
  5. PLACEBO [Suspect]
     Active Substance: UNSPECIFIED INGREDIENT
     Indication: QUADRIPLEGIA
     Dosage: UNK
     Dates: start: 1996, end: 1996
  6. 4-AP [Suspect]
     Active Substance: DALFAMPRIDINE
     Indication: QUADRIPLEGIA
     Dosage: 15 MG, TID
     Route: 048
     Dates: start: 1997, end: 2002

REACTIONS (8)
  - Hypoaesthesia oral [Recovered/Resolved]
  - Insomnia [Recovered/Resolved]
  - Off label use [Recovered/Resolved]
  - Neck pain [Recovered/Resolved]
  - Pain in jaw [Recovered/Resolved]
  - Oropharyngeal pain [Recovered/Resolved]
  - Pain in jaw [Recovered/Resolved]
  - Neck pain [Recovered/Resolved]

NARRATIVE: CASE EVENT DATE: 1996
